FAERS Safety Report 15252541 (Version 1)
Quarter: 2018Q3

REPORT INFORMATION
  Report Type: Spontaneous
  Country: US (occurrence: US)
  Receive Date: 20180717
  Receipt Date: 20180717
  Transmission Date: 20181010
  Serious: Yes (Disabling)
  Sender: FDA-Public Use
  Company Number: None

PATIENT
  Age: 77 Year
  Sex: Female
  Weight: 77.11 kg

DRUGS (9)
  1. CALCIUM+D3 [Concomitant]
  2. UBIQUINOL CO Q10 [Concomitant]
  3. GLUCOSAMINE?CHONDROITIN TRIPLE STRENGTH [Concomitant]
  4. METOPROLOL ER SUCCINATE [Concomitant]
     Active Substance: METOPROLOL SUCCINATE
  5. ASPRIN [Concomitant]
     Active Substance: ASPIRIN
  6. HYDROCHLOROTHIAZIDE. [Concomitant]
     Active Substance: HYDROCHLOROTHIAZIDE
  7. IBANDRONATE SODIUM 150MG ? 1 A DAY [Suspect]
     Active Substance: IBANDRONATE SODIUM
  8. ALENDRONATE [Suspect]
     Active Substance: ALENDRONATE SODIUM
     Indication: OSTEOPOROSIS
     Route: 048
     Dates: start: 20161011, end: 20161211
  9. CHOLESTOFF PLUS [Concomitant]

REACTIONS (4)
  - Condition aggravated [None]
  - Drug effect decreased [None]
  - Arthralgia [None]
  - Swelling [None]
